FAERS Safety Report 9330844 (Version 2)
Quarter: 2013Q2

REPORT INFORMATION
  Report Type: Report from Study
  Country: IE (occurrence: IE)
  Receive Date: 20130605
  Receipt Date: 20130627
  Transmission Date: 20140414
  Serious: Yes (Life-Threatening, Hospitalization)
  Sender: FDA-Public Use
  Company Number: IE-ROCHE-1205365

PATIENT
  Age: 57 Year
  Sex: Female
  Weight: 75.6 kg

DRUGS (30)
  1. RHUPH20/RITUXIMAB [Suspect]
     Indication: DIFFUSE LARGE B-CELL LYMPHOMA
     Dosage: LAST DOSE PRIOR TO SAE: 12/MAR/2013
     Route: 058
     Dates: start: 20130226
  2. RHUPH20/RITUXIMAB [Suspect]
     Route: 058
     Dates: start: 20130326
  3. RHUPH20/RITUXIMAB [Suspect]
     Route: 058
     Dates: start: 20130430
  4. CYCLOPHOSPHAMIDE [Suspect]
     Indication: DIFFUSE LARGE B-CELL LYMPHOMA
     Dosage: LAST DOSE PRIOR TO SAE: 12/MAR/2013
     Route: 065
     Dates: start: 20130226
  5. DOXORUBICIN [Suspect]
     Indication: DIFFUSE LARGE B-CELL LYMPHOMA
     Dosage: LAST DOSE PRIOR TO SAE: 12/MAR/2013
     Route: 065
     Dates: start: 20130226
  6. DOXORUBICIN [Suspect]
     Route: 065
     Dates: start: 20130312
  7. DOXORUBICIN [Suspect]
     Route: 065
     Dates: start: 20130326
  8. DOXORUBICIN [Suspect]
     Route: 065
     Dates: start: 20130409
  9. DOXORUBICIN [Suspect]
     Route: 065
     Dates: start: 20130430
  10. VINCRISTINE [Suspect]
     Indication: DIFFUSE LARGE B-CELL LYMPHOMA
     Dosage: LAST DOSE PRIOR TO SAE: 12/MAR/2013
     Route: 065
     Dates: start: 20130226
  11. VINCRISTINE [Suspect]
     Route: 065
     Dates: start: 20130312
  12. VINCRISTINE [Suspect]
     Route: 065
     Dates: start: 20130326
  13. VINCRISTINE [Suspect]
     Route: 065
     Dates: start: 20130409
  14. VINCRISTINE [Suspect]
     Route: 065
     Dates: start: 20130430
  15. PREDNISONE [Suspect]
     Indication: DIFFUSE LARGE B-CELL LYMPHOMA
     Dosage: LAST DOSE OF 50 MG PRIOR TO SAE: 12/MAR/2013
     Route: 065
     Dates: start: 20130226
  16. PREDNISONE [Suspect]
     Route: 065
     Dates: start: 20130312
  17. PREDNISONE [Suspect]
     Route: 065
     Dates: start: 20130326
  18. PREDNISONE [Suspect]
     Route: 065
     Dates: start: 20130409
  19. PREDNISONE [Suspect]
     Route: 065
     Dates: start: 20130430
  20. PARACETAMOL [Concomitant]
     Route: 048
     Dates: start: 201301
  21. VALTREX [Concomitant]
     Route: 048
     Dates: start: 20130321
  22. KLARICID [Concomitant]
     Route: 048
     Dates: start: 20130322
  23. CORSODYL [Concomitant]
     Route: 002
  24. MYCOSTATIN [Concomitant]
     Route: 048
  25. MOTILIUM-M [Concomitant]
     Dosage: AS NEEDED
     Route: 048
  26. INNOHEP [Concomitant]
     Route: 058
     Dates: start: 20130422, end: 20130425
  27. LACTULOSE [Concomitant]
     Route: 048
     Dates: start: 20130419, end: 20130424
  28. LANSOPRAZOLE [Concomitant]
     Dosage: ONCE DAILY
     Route: 048
  29. GCSF OR GMCSF [Concomitant]
     Indication: NEUTROPENIA
     Dosage: AS NEEDED
     Route: 058
     Dates: start: 20130307
  30. RED CELLS PACK [Concomitant]
     Dosage: ONCE DAILY
     Route: 042
     Dates: start: 20130418, end: 20130419

REACTIONS (4)
  - Febrile neutropenia [Recovered/Resolved]
  - Dehydration [Not Recovered/Not Resolved]
  - Neutropenia [Not Recovered/Not Resolved]
  - Diarrhoea [Not Recovered/Not Resolved]
